FAERS Safety Report 12179721 (Version 1)
Quarter: 2016Q1

REPORT INFORMATION
  Report Type: Spontaneous
  Country: US (occurrence: US)
  Receive Date: 20160314
  Receipt Date: 20160314
  Transmission Date: 20160526
  Serious: Yes (Hospitalization)
  Sender: FDA-Public Use
  Company Number: US-ANACOR-2016ANA00079

PATIENT
  Age: 71 Year
  Sex: Male
  Weight: 83.9 kg

DRUGS (3)
  1. KERYDIN [Suspect]
     Active Substance: TAVABOROLE
     Indication: ONYCHOMYCOSIS
     Dosage: UNK UNK, 1X/DAY
     Route: 061
     Dates: start: 20151217
  2. FINASTERIDE. [Concomitant]
     Active Substance: FINASTERIDE
     Dosage: 5 MG, UNK
  3. TAMSULOSIN HYDROCHLORIDE. [Concomitant]
     Active Substance: TAMSULOSIN HYDROCHLORIDE
     Dosage: 0.4 MG, UNK

REACTIONS (3)
  - Insomnia [Unknown]
  - Feeling abnormal [Unknown]
  - Ventricular extrasystoles [Not Recovered/Not Resolved]

NARRATIVE: CASE EVENT DATE: 201602
